FAERS Safety Report 8489703-X (Version None)
Quarter: 2012Q3

REPORT INFORMATION
  Report Type: 
  Country: None (occurrence: None)
  Receive Date: 20120705
  Receipt Date: 20120628
  Transmission Date: 20120928
  Serious: Yes (Hospitalization)
  Sender: FDA-Public Use
  Company Number: PL-GLAXOSMITHKLINE-B0669623A

PATIENT
  Sex: Female
  Weight: 67 kg

DRUGS (5)
  1. DIAPREL [Concomitant]
     Indication: DIABETES MELLITUS
     Route: 048
     Dates: start: 20100721
  2. LAPATINIB [Suspect]
     Indication: BREAST CANCER
     Dosage: 1000MG PER DAY
     Route: 048
     Dates: start: 20091228, end: 20100428
  3. RADIOTHERAPY [Suspect]
  4. TRASTUZUMAB [Suspect]
     Indication: BREAST CANCER
     Route: 042
     Dates: start: 20091228, end: 20100322
  5. PACLITAXEL [Suspect]
     Indication: BREAST CANCER
     Dosage: 80MGM2 WEEKLY
     Route: 042
     Dates: start: 20091228, end: 20100329

REACTIONS (1)
  - PNEUMONIA [None]
